FAERS Safety Report 10260398 (Version 1)
Quarter: 2014Q2

REPORT INFORMATION
  Report Type: Spontaneous
  Country: US (occurrence: US)
  Receive Date: 20140625
  Receipt Date: 20140625
  Transmission Date: 20141212
  Serious: Yes (Other)
  Sender: FDA-Public Use
  Company Number: US-AMGEN INC.-USASP2014046426

PATIENT
  Sex: Male

DRUGS (8)
  1. NEULASTA [Suspect]
     Indication: PRODUCT USED FOR UNKNOWN INDICATION
     Dosage: UNK
     Route: 065
  2. NEUPOGEN [Suspect]
     Indication: FEBRILE NEUTROPENIA
     Dosage: UNK
     Route: 065
  3. ADRIAMYCIN                         /00330901/ [Concomitant]
     Dosage: UNK
  4. RITUXIMAB [Concomitant]
     Dosage: UNK
  5. CYCLOPHOSPHAMIDE [Concomitant]
     Dosage: UNK
  6. DOXORUBICIN [Concomitant]
     Dosage: UNK
  7. VINCRISTINE [Concomitant]
     Dosage: UNK
  8. PREDNISONE [Concomitant]
     Dosage: UNK

REACTIONS (1)
  - Febrile neutropenia [Unknown]
